FAERS Safety Report 12009986 (Version 1)
Quarter: 2016Q1

REPORT INFORMATION
  Report Type: Spontaneous
  Country: FR (occurrence: FR)
  Receive Date: 20160205
  Receipt Date: 20160205
  Transmission Date: 20160526
  Serious: Yes (Life-Threatening)
  Sender: FDA-Public Use
  Company Number: FR-FRESENIUS KABI-FK201600562

PATIENT
  Age: 70 Year
  Sex: Male

DRUGS (5)
  1. LASILIX [Concomitant]
     Active Substance: FUROSEMIDE
  2. AUGMENTIN [Concomitant]
     Active Substance: AMOXICILLIN\CLAVULANATE POTASSIUM
  3. PROPOFOL FRESENIUS (NOT SPECIFIED) [Suspect]
     Active Substance: PROPOFOL
     Indication: SURGERY
     Route: 042
     Dates: start: 20151230, end: 20151230
  4. ESMERON [Suspect]
     Active Substance: ROCURONIUM BROMIDE
     Indication: SURGERY
     Route: 042
     Dates: start: 20151230, end: 20151230
  5. ULTIVA [Suspect]
     Active Substance: REMIFENTANIL HYDROCHLORIDE
     Indication: SURGERY
     Route: 042
     Dates: start: 20151230, end: 20151230

REACTIONS (1)
  - Anaphylactic shock [Recovered/Resolved]

NARRATIVE: CASE EVENT DATE: 20151230
